FAERS Safety Report 5848140-4 (Version None)
Quarter: 2008Q3

REPORT INFORMATION
  Report Type: 
  Country: None (occurrence: None)
  Receive Date: 20080818
  Receipt Date: 20080808
  Transmission Date: 20090109
  Serious: Yes (Other)
  Sender: FDA-Public Use
  Company Number: A0706736A

PATIENT
  Age: 61 Year
  Sex: Male

DRUGS (8)
  1. AVANDIA [Suspect]
     Indication: DRUG USE FOR UNKNOWN INDICATION
     Dosage: 4MG TWICE PER DAY
     Route: 065
     Dates: start: 20010220, end: 20070601
  2. AVANDAMET [Suspect]
     Indication: DRUG USE FOR UNKNOWN INDICATION
     Route: 065
     Dates: start: 20040416, end: 20060317
  3. METFORMIN HCL [Concomitant]
     Dosage: 1000MG TWICE PER DAY
  4. LANTUS [Concomitant]
  5. NAPROXEN [Concomitant]
     Dosage: 500MG TWICE PER DAY
  6. ENALAPRIL [Concomitant]
     Dosage: 10MG TWICE PER DAY
  7. LIPITOR [Concomitant]
     Dosage: 40MG PER DAY
  8. HYDROCHLOROTHIAZIDE [Concomitant]
     Dosage: 12.5MG PER DAY

REACTIONS (2)
  - CORONARY ARTERY DISEASE [None]
  - MYOCARDIAL INFARCTION [None]
